FAERS Safety Report 8991181 (Version 2)
Quarter: 2013Q1

REPORT INFORMATION
  Report Type: Spontaneous
  Country: US (occurrence: None)
  Receive Date: 20121219
  Receipt Date: 20130124
  Transmission Date: 20140127
  Serious: Yes (Death, Hospitalization)
  Sender: FDA-Public Use
  Company Number: 2012-1442

PATIENT
  Age: 56 Year
  Sex: Male

DRUGS (6)
  1. KYPROLIS [Suspect]
     Dates: start: 20121113
  2. CYMBALTA (DULOXETINE HYDROCHLORIDE) (DULOXETINE HYDROCHLORIDE) [Concomitant]
  3. ACYCLOVIR (ACICLOVIR) (ACICLOVIR) [Concomitant]
  4. BACLOFEN (BACLOFEN) (BACLOFEN) [Concomitant]
  5. DEXAMETHASONE (DEXAMETHASONE) (DEXAMETHASONE) [Concomitant]
  6. CIPRO (CIPROFLOXACIN) (CIPROFLOXACIN) [Concomitant]

REACTIONS (7)
  - Pancytopenia [None]
  - Pyrexia [None]
  - Asthenia [None]
  - Dizziness [None]
  - Swelling [None]
  - Sinus tachycardia [None]
  - Lung infiltration [None]
